FAERS Safety Report 11921020 (Version 4)
Quarter: 2017Q1

REPORT INFORMATION
  Report Type: Spontaneous
  Country: US (occurrence: US)
  Receive Date: 20160115
  Receipt Date: 20170116
  Transmission Date: 20170428
  Serious: Yes (Other)
  Sender: FDA-Public Use
  Company Number: US-ASTELLAS-2015US037101

PATIENT
  Age: 68 Year
  Sex: Female

DRUGS (3)
  1. MYRBETRIQ [Suspect]
     Active Substance: MIRABEGRON
     Indication: PRODUCT USED FOR UNKNOWN INDICATION
     Route: 065
     Dates: start: 20150811
  2. LANTUS [Concomitant]
     Active Substance: INSULIN GLARGINE
     Indication: PRODUCT USED FOR UNKNOWN INDICATION
     Dosage: UNK UNK, UNKNOWN FREQ.
     Route: 065
  3. NOVOLOG [Concomitant]
     Active Substance: INSULIN ASPART
     Indication: PRODUCT USED FOR UNKNOWN INDICATION
     Dosage: UNK UNK, UNKNOWN FREQ.
     Route: 065

REACTIONS (14)
  - Osteomyelitis [Unknown]
  - Urge incontinence [Unknown]
  - Pain in extremity [Unknown]
  - Cellulitis [Unknown]
  - Fall [Not Recovered/Not Resolved]
  - Cyst [Recovering/Resolving]
  - Arthralgia [Unknown]
  - Arthropathy [Unknown]
  - Femur fracture [Unknown]
  - Urinary incontinence [Unknown]
  - Drug ineffective [Unknown]
  - Dental caries [Unknown]
  - Dry mouth [Unknown]
  - Abscess [Unknown]

NARRATIVE: CASE EVENT DATE: 20151028
